FAERS Safety Report 10419683 (Version 2)
Quarter: 2014Q3

REPORT INFORMATION
  Report Type: Report from Study
  Country: US (occurrence: US)
  Receive Date: 20140829
  Receipt Date: 20140903
  Transmission Date: 20150326
  Serious: Yes (Other)
  Sender: FDA-Public Use
  Company Number: US-BAXTER-2014BAX051464

PATIENT
  Age: 58 Year
  Sex: Female
  Weight: 59.02 kg

DRUGS (3)
  1. GAMMAGARD LIQUID [Suspect]
     Active Substance: HUMAN IMMUNOGLOBULIN G
     Indication: IMMUNODEFICIENCY
     Route: 042
     Dates: start: 2004, end: 2012
  2. GAMMAGARD LIQUID [Suspect]
     Active Substance: HUMAN IMMUNOGLOBULIN G
     Route: 042
     Dates: start: 2012
  3. GAMMAGARD LIQUID [Suspect]
     Active Substance: HUMAN IMMUNOGLOBULIN G
     Indication: IMMUNODEFICIENCY
     Route: 058
     Dates: start: 2012, end: 2012

REACTIONS (4)
  - Infusion related reaction [Unknown]
  - Infusion site swelling [Unknown]
  - Urinary tract infection [Recovering/Resolving]
  - Coeliac disease [Recovering/Resolving]

NARRATIVE: CASE EVENT DATE: 2012
